FAERS Safety Report 21683016 (Version 2)
Quarter: 2022Q4

REPORT INFORMATION
  Report Type: Spontaneous
  Country: US (occurrence: US)
  Receive Date: 20221205
  Receipt Date: 20221216
  Transmission Date: 20230113
  Serious: Yes (Other)
  Sender: FDA-Public Use
  Company Number: US-BAXTER-2022BAX025755

PATIENT
  Age: 72 Year
  Sex: Female

DRUGS (1)
  1. DOXORUBICIN [Suspect]
     Active Substance: DOXORUBICIN
     Indication: Ovarian cancer
     Dosage: UNK
     Route: 042
     Dates: start: 20221121, end: 20221128

REACTIONS (5)
  - Anaphylactic reaction [Recovered/Resolved]
  - Swelling face [Recovered/Resolved]
  - Throat tightness [Recovered/Resolved]
  - Blood pressure increased [Recovered/Resolved]
  - Anaphylactic reaction [Recovered/Resolved]

NARRATIVE: CASE EVENT DATE: 20221121
